FAERS Safety Report 13353413 (Version 1)
Quarter: 2017Q1

REPORT INFORMATION
  Report Type: Spontaneous
  Country: FR (occurrence: FR)
  Receive Date: 20170321
  Receipt Date: 20170321
  Transmission Date: 20170429
  Serious: Yes (Other)
  Sender: FDA-Public Use
  Company Number: FR-ACCORD-049231

PATIENT
  Age: 66 Year
  Sex: Female

DRUGS (5)
  1. FLUOROURACIL ACCORD [Suspect]
     Active Substance: FLUOROURACIL
     Indication: ADENOCARCINOMA OF COLON
     Dosage: A COURSE WAS ADMINISTERED EVERY TWO WEEKS, AND THE ELEVENTH COURSE ON 05-DEC-2016
     Route: 042
     Dates: start: 20160704, end: 20161205
  2. SOLUPRED [Suspect]
     Active Substance: PREDNISOLONE
     Indication: PROPHYLAXIS
     Dosage: A COURSE WAS ADMINISTERED EVERY TWO WEEKS, AND THE ELEVENTH COURSE ON 05-DEC-2016
     Route: 048
     Dates: start: 20160704, end: 20161205
  3. OXALIPLATIN HOSPIRA [Suspect]
     Active Substance: OXALIPLATIN
     Indication: ADENOCARCINOMA OF COLON
     Dosage: A COURSE WAS ADMINISTERED EVERY TWO WEEKS, AND THE ELEVENTH COURSE ON 05-DEC-2016
     Route: 042
     Dates: start: 20160704, end: 20161205
  4. ONDANSETRON [Suspect]
     Active Substance: ONDANSETRON
     Indication: PROPHYLAXIS OF NAUSEA AND VOMITING
     Dosage: A COURSE WAS ADMINISTERED EVERY TWO WEEKS, AND THE ELEVENTH COURSE ON 05-DEC-2016
     Route: 048
     Dates: start: 20160704, end: 20161205
  5. FOLINIC ACID [Suspect]
     Active Substance: LEUCOVORIN
     Indication: ADENOCARCINOMA OF COLON
     Dosage: A COURSE WAS ADMINISTERED EVERY TWO WEEKS, AND THE ELEVENTH COURSE ON 05-DEC-2016
     Route: 042
     Dates: start: 20160704, end: 20161205

REACTIONS (1)
  - Interstitial lung disease [Recovering/Resolving]

NARRATIVE: CASE EVENT DATE: 201608
